FAERS Safety Report 25478853 (Version 1)
Quarter: 2025Q2

REPORT INFORMATION
  Report Type: Spontaneous
  Country: IT (occurrence: IT)
  Receive Date: 20250625
  Receipt Date: 20250625
  Transmission Date: 20250716
  Serious: Yes (Hospitalization, Other)
  Sender: COSETTE PHARMACEUTICALS INC
  Company Number: IT-COSETTE-CP2025IT000587

PATIENT
  Age: 58 Year
  Sex: Male

DRUGS (1)
  1. AZOR [Suspect]
     Active Substance: AMLODIPINE BESYLATE\OLMESARTAN MEDOXOMIL
     Indication: Hypertension
     Route: 065

REACTIONS (2)
  - Capillary leak syndrome [Recovered/Resolved]
  - COVID-19 [Recovering/Resolving]
